FAERS Safety Report 7198856-5 (Version None)
Quarter: 2010Q4

REPORT INFORMATION
  Report Type: 
  Country: None (occurrence: None)
  Receive Date: 20101227
  Receipt Date: 20101220
  Transmission Date: 20110411
  Serious: Yes (Other)
  Sender: FDA-Public Use
  Company Number: IT-ABBOTT-10P-083-0692852-00

PATIENT
  Sex: Female

DRUGS (7)
  1. HUMIRA [Suspect]
     Indication: ANKYLOSING SPONDYLITIS
     Dosage: 40MG DAILY; CYCLIC
     Route: 058
     Dates: start: 20101106, end: 20101106
  2. VITAMIN D [Concomitant]
     Indication: PRODUCT USED FOR UNKNOWN INDICATION
  3. SALMETEROLO [Concomitant]
     Indication: PRODUCT USED FOR UNKNOWN INDICATION
  4. CARDIOASPIRIN [Concomitant]
     Indication: PRODUCT USED FOR UNKNOWN INDICATION
  5. LIMPIDEX [Concomitant]
     Indication: PRODUCT USED FOR UNKNOWN INDICATION
  6. TACHIPIRINA [Concomitant]
     Indication: PRODUCT USED FOR UNKNOWN INDICATION
  7. ZESTORETIC [Concomitant]
     Indication: PRODUCT USED FOR UNKNOWN INDICATION

REACTIONS (4)
  - ABDOMINAL DISTENSION [None]
  - GASTROINTESTINAL HYPOMOTILITY [None]
  - NAUSEA [None]
  - PARAESTHESIA [None]
